FAERS Safety Report 13381921 (Version 1)
Quarter: 2017Q1

REPORT INFORMATION
  Report Type: Spontaneous
  Country: US (occurrence: US)
  Receive Date: 20170329
  Receipt Date: 20170329
  Transmission Date: 20170429
  Serious: No
  Sender: FDA-Public Use
  Company Number: GXBR2017US001050

PATIENT
  Sex: Female
  Weight: 68.27 kg

DRUGS (1)
  1. BIMATOPROST. [Suspect]
     Active Substance: BIMATOPROST
     Indication: GROWTH OF EYELASHES
     Dosage: 1 DF, QD
     Route: 065

REACTIONS (2)
  - Vitreous floaters [Recovered/Resolved]
  - Ocular hyperaemia [Not Recovered/Not Resolved]
